FAERS Safety Report 6684865-9 (Version None)
Quarter: 2010Q2

REPORT INFORMATION
  Report Type: 
  Country: None (occurrence: None)
  Receive Date: 20100416
  Receipt Date: 20100412
  Transmission Date: 20101027
  Serious: Yes (Hospitalization)
  Sender: FDA-Public Use
  Company Number: US-MERCK-1003USA02175

PATIENT
  Age: 66 Year
  Sex: Female

DRUGS (4)
  1. FOSAMAX [Suspect]
     Indication: OSTEOPOROSIS
     Route: 048
     Dates: start: 20000101, end: 20090101
  2. CALCIUM (UNSPECIFIED) [Concomitant]
     Route: 065
  3. LEVOTHYROXINE SODIUM [Concomitant]
     Route: 065
  4. OXYBUTYNIN [Concomitant]
     Route: 065

REACTIONS (8)
  - ANAEMIA [None]
  - CARDIAC MURMUR [None]
  - FALL [None]
  - FEMUR FRACTURE [None]
  - HYPOTHYROIDISM [None]
  - INFECTION [None]
  - PAIN IN EXTREMITY [None]
  - RASH [None]
